FAERS Safety Report 7968162-7 (Version None)
Quarter: 2011Q4

REPORT INFORMATION
  Report Type: 
  Country: None (occurrence: None)
  Receive Date: 20111209
  Receipt Date: 20111129
  Transmission Date: 20120403
  Serious: Yes (Other)
  Sender: FDA-Public Use
  Company Number: PHHY2011DE104618

PATIENT
  Age: 43 Year
  Sex: Male

DRUGS (4)
  1. CARBAMAZEPINE [Suspect]
     Dosage: 600 MG, PER DAY
     Route: 048
     Dates: start: 20110519, end: 20110521
  2. CARBAMAZEPINE [Suspect]
     Dosage: 300 MG, UNK
     Route: 048
     Dates: start: 20110522, end: 20110523
  3. THIAMINE HCL [Concomitant]
     Dosage: 300 MG, UNK
     Route: 048
     Dates: start: 20110519, end: 20110523
  4. MIRTAZAPINE [Concomitant]
     Dosage: 45 MG, UNK
     Route: 048

REACTIONS (2)
  - SKIN LESION [None]
  - BLOOD BLISTER [None]
